FAERS Safety Report 7788550-1 (Version None)
Quarter: 2011Q3

REPORT INFORMATION
  Report Type: 
  Country: None (occurrence: None)
  Receive Date: 20110930
  Receipt Date: 20110920
  Transmission Date: 20111222
  Serious: Yes (Hospitalization, Other)
  Sender: FDA-Public Use
  Company Number: DK-JNJFOC-20090500113

PATIENT
  Sex: Female
  Weight: 78 kg

DRUGS (6)
  1. LOCOID LIPOCREAM [Concomitant]
  2. REMICADE [Suspect]
     Route: 042
     Dates: start: 20090114
  3. METHOTREXATE [Concomitant]
  4. REMICADE [Suspect]
     Indication: PSORIATIC ARTHROPATHY
     Route: 042
     Dates: end: 20090225
  5. PULMICORT [Concomitant]
     Indication: ASTHMA
  6. PAMOL [Concomitant]

REACTIONS (1)
  - TUBERCULOSIS [None]
